FAERS Safety Report 5417192-8 (Version None)
Quarter: 2007Q3

REPORT INFORMATION
  Report Type: 
  Country: None (occurrence: None)
  Receive Date: 20070816
  Receipt Date: 20070222
  Transmission Date: 20080115
  Serious: No
  Sender: FDA-Public Use
  Company Number: US-BOEHRINGER INGELHEIM PHARMACEUTICALS, INC.-2006-BP-10312BP

PATIENT
  Sex: Male

DRUGS (18)
  1. MIRAPEX [Suspect]
     Indication: PARKINSON'S DISEASE
     Route: 048
     Dates: start: 20011101, end: 20040601
  2. SINEMET [Concomitant]
  3. ARTANE [Concomitant]
  4. ELDEPRYL [Concomitant]
  5. ASPIRIN [Concomitant]
  6. MULTI-VITAMIN [Concomitant]
  7. ASCORBIC ACID [Concomitant]
  8. VITAMIN E [Concomitant]
  9. VITAMIN B [Concomitant]
  10. DIOVAN [Concomitant]
  11. MICROZIDE [Concomitant]
     Dates: start: 20020401
  12. KEMADRIN [Concomitant]
     Route: 048
  13. VIAGRA [Concomitant]
  14. COMTAN [Concomitant]
     Dates: start: 20030501
  15. STALEVO 100 [Concomitant]
     Dates: start: 20040101
  16. FLOMAX [Concomitant]
     Route: 048
  17. PRIMIDONE [Concomitant]
     Dates: start: 20050101
  18. MYSOLINE [Concomitant]
     Dates: start: 20051001

REACTIONS (2)
  - OBSESSIVE-COMPULSIVE DISORDER [None]
  - PATHOLOGICAL GAMBLING [None]
